FAERS Safety Report 24401556 (Version 1)
Quarter: 2024Q4

REPORT INFORMATION
  Report Type: Spontaneous
  Country: US (occurrence: US)
  Receive Date: 20241007
  Receipt Date: 20241007
  Transmission Date: 20250114
  Serious: No
  Sender: ALK-ABELLO
  Company Number: US-ALK-ABELLO A/S-2024AA003338

PATIENT

DRUGS (11)
  1. CARYA ILLINOINENSIS POLLEN [Suspect]
     Active Substance: CARYA ILLINOINENSIS POLLEN
     Indication: Diagnostic procedure
  2. DAE BULK 764 [Concomitant]
  3. DAE BULK 765 [Concomitant]
  4. DAE BULK 763 [Concomitant]
  5. DAE BULK 766 [Concomitant]
  6. PISTACHIO NUT [Concomitant]
     Active Substance: PISTACHIO
  7. ALLERGENIC EXTRACT- PEANUT ARACHIS HYPOGAEA [Concomitant]
     Active Substance: ALLERGENIC EXTRACT- PEANUT ARACHIS HYPOGAEA
  8. DAE BULK 1334 [Concomitant]
  9. AUVI-Q [Concomitant]
     Active Substance: EPINEPHRINE
     Dosage: UNK
     Dates: start: 20240305
  10. DEXAMETHASONE [Concomitant]
     Active Substance: DEXAMETHASONE
     Dosage: 6 MILLIGRAM, ORAL TABLET
     Route: 048
     Dates: start: 20211123
  11. DIPHENHYDRAMINE [Concomitant]
     Active Substance: DIPHENHYDRAMINE
     Dosage: 12.5 MG/5 ML ORAL LIQUID
     Route: 048
     Dates: start: 20240715

REACTIONS (1)
  - False negative investigation result [Unknown]
